FAERS Safety Report 4476710-7 (Version None)
Quarter: 2004Q4

REPORT INFORMATION
  Report Type: 
  Country: None (occurrence: None)
  Receive Date: 20041013
  Receipt Date: 20040928
  Transmission Date: 20050328
  Serious: Yes (Hospitalization)
  Sender: FDA-Public Use
  Company Number: 8006467

PATIENT
  Age: 25 Year
  Sex: Male
  Weight: 70 kg

DRUGS (6)
  1. KEPPRA [Suspect]
     Indication: CONVULSION
     Dosage: 2000 MG /D PO
     Route: 048
     Dates: start: 20030101, end: 20040501
  2. KEPPRA [Suspect]
     Indication: CONVULSION
     Dosage: 2500 MG PO
     Route: 048
     Dates: start: 20040501, end: 20040501
  3. TOPAMAX [Concomitant]
  4. DIAZEPAM [Concomitant]
  5. KEPPRA [Suspect]
     Indication: CONVULSION
     Dosage: 2750 MG PO
     Route: 048
     Dates: start: 20040501, end: 20040613
  6. KEPPRA [Suspect]
     Indication: CONVULSION
     Dosage: 1750 MG PO
     Route: 048
     Dates: start: 20040614

REACTIONS (12)
  - ABNORMAL BEHAVIOUR [None]
  - AGITATION [None]
  - DEPRESSION [None]
  - FATIGUE [None]
  - HALLUCINATIONS, MIXED [None]
  - INSOMNIA [None]
  - IRRITABILITY [None]
  - MANIA [None]
  - MOOD ALTERED [None]
  - NERVOUSNESS [None]
  - SCHIZOPHRENIA [None]
  - WEIGHT DECREASED [None]
